FAERS Safety Report 5088869-1 (Version None)
Quarter: 2006Q3

REPORT INFORMATION
  Report Type: 
  Country: None (occurrence: None)
  Receive Date: 20060825
  Receipt Date: 20060817
  Transmission Date: 20061208
  Serious: Yes (Hospitalization)
  Sender: FDA-Public Use
  Company Number: ES-ROCHE-459906

PATIENT
  Age: 46 Year
  Sex: Male
  Weight: 57 kg

DRUGS (3)
  1. PEG-INTERFERON A-2A (RO 25-8310) [Suspect]
     Dosage: FORM = INJECTION
     Route: 058
     Dates: start: 20060530, end: 20060810
  2. RIBAVIRIN [Suspect]
     Dosage: FORM = COMP
     Route: 048
     Dates: start: 20060530, end: 20060810
  3. TRIZIVIR [Concomitant]
     Dosage: FORM = COMP
     Dates: start: 20040315, end: 20060810

REACTIONS (1)
  - PANCYTOPENIA [None]
